FAERS Safety Report 6876819-4 (Version None)
Quarter: 2010Q3

REPORT INFORMATION
  Report Type: 
  Country: None (occurrence: None)
  Receive Date: 20100727
  Receipt Date: 20100716
  Transmission Date: 20110219
  Serious: Yes (Hospitalization)
  Sender: FDA-Public Use
  Company Number: US-ROCHE-711228

PATIENT
  Sex: Female

DRUGS (3)
  1. PEGASYS [Suspect]
     Indication: HEPATITIS C
     Dosage: PRE-FILLED SYRINGE (PFS)
     Route: 065
     Dates: start: 20100219, end: 20100708
  2. COPEGUS [Suspect]
     Indication: HEPATITIS C
     Route: 048
     Dates: start: 20100219
  3. COPEGUS [Suspect]
     Dosage: DIVIDED DOSES
     Route: 048
     Dates: end: 20100708

REACTIONS (10)
  - CAROTID ARTERY ANEURYSM [None]
  - EXOSTOSIS [None]
  - HAEMOGLOBIN [None]
  - HERPES ZOSTER [None]
  - ILEUS [None]
  - MEMORY IMPAIRMENT [None]
  - NAUSEA [None]
  - PSORIASIS [None]
  - VIRAL LOAD INCREASED [None]
  - VISION BLURRED [None]
